FAERS Safety Report 4720776-3 (Version None)
Quarter: 2005Q3

REPORT INFORMATION
  Report Type: 
  Country: None (occurrence: None)
  Receive Date: 20050713
  Receipt Date: 20050628
  Transmission Date: 20060218
  Serious: Yes (Hospitalization)
  Sender: FDA-Public Use
  Company Number: THYM-10608

PATIENT
  Age: 73 Year
  Sex: Female
  Weight: 69.9 kg

DRUGS (4)
  1. THYMOGLOBULIN [Suspect]
     Indication: RENAL TRANSPLANT
     Dosage: 100 MG QD IV
     Route: 042
     Dates: start: 20050607, end: 20050609
  2. PROGRAF [Suspect]
     Indication: IMMUNOSUPPRESSION
     Dosage: 1 MG QD
     Dates: start: 20050608
  3. PREDNISONE [Concomitant]
  4. MYCOPHENOLATE MOFETIL [Concomitant]

REACTIONS (5)
  - ASTHENIA [None]
  - DEHYDRATION [None]
  - DRUG LEVEL INCREASED [None]
  - FATIGUE [None]
  - NEPHROPATHY TOXIC [None]
